FAERS Safety Report 7810716-2 (Version None)
Quarter: 2011Q4

REPORT INFORMATION
  Report Type: 
  Country: None (occurrence: None)
  Receive Date: 20111006
  Receipt Date: 20110926
  Transmission Date: 20120403
  Serious: Yes (Hospitalization)
  Sender: FDA-Public Use
  Company Number: 200603

PATIENT
  Age: 65 Year
  Sex: Female

DRUGS (13)
  1. ZYPREXA [Concomitant]
  2. ASENAPINE [Concomitant]
  3. ZYPREXA [Concomitant]
  4. ABILIFY [Concomitant]
  5. LATUDA [Suspect]
     Indication: HALLUCINATION, AUDITORY
     Dosage: LATUDA 40 MG;QD;ORAL ; 40 MG;QD;ORAL
     Route: 048
     Dates: start: 20110101, end: 20110101
  6. LATUDA [Suspect]
     Indication: POST-TRAUMATIC STRESS DISORDER
     Dosage: LATUDA 40 MG;QD;ORAL ; 40 MG;QD;ORAL
     Route: 048
     Dates: start: 20110101, end: 20110101
  7. LATUDA [Suspect]
     Indication: SCHIZOAFFECTIVE DISORDER
     Dosage: LATUDA 40 MG;QD;ORAL ; 40 MG;QD;ORAL
     Route: 048
     Dates: start: 20110101, end: 20110101
  8. LATUDA [Suspect]
     Indication: HALLUCINATION, AUDITORY
     Dosage: LATUDA 40 MG;QD;ORAL ; 40 MG;QD;ORAL
     Route: 048
     Dates: start: 20110801, end: 20110801
  9. LATUDA [Suspect]
     Indication: POST-TRAUMATIC STRESS DISORDER
     Dosage: LATUDA 40 MG;QD;ORAL ; 40 MG;QD;ORAL
     Route: 048
     Dates: start: 20110801, end: 20110801
  10. LATUDA [Suspect]
     Indication: SCHIZOAFFECTIVE DISORDER
     Dosage: LATUDA 40 MG;QD;ORAL ; 40 MG;QD;ORAL
     Route: 048
     Dates: start: 20110801, end: 20110801
  11. OTHER HYPNOTICS AND SEDATIVES [Concomitant]
  12. KLONOPIN [Suspect]
  13. ANALGESICS [Concomitant]

REACTIONS (7)
  - CONFUSIONAL STATE [None]
  - DISORIENTATION [None]
  - IMPAIRED DRIVING ABILITY [None]
  - PARANOIA [None]
  - OVERDOSE [None]
  - HALLUCINATION [None]
  - WEIGHT INCREASED [None]
